FAERS Safety Report 4963425-1 (Version None)
Quarter: 2006Q1

REPORT INFORMATION
  Report Type: 
  Country: None (occurrence: None)
  Receive Date: 20060330
  Receipt Date: 20060317
  Transmission Date: 20060701
  Serious: Yes (Other)
  Sender: FDA-Public Use
  Company Number: USA-2006-0023846

PATIENT
  Sex: Female

DRUGS (3)
  1. OXYCONTIN [Suspect]
     Indication: PELVIC PAIN
     Dosage: 20 MG, SEE TEXT
  2. VICODIN [Concomitant]
  3. ELAVIL [Concomitant]

REACTIONS (6)
  - CONDITION AGGRAVATED [None]
  - IATROGENIC INJURY [None]
  - INGUINAL HERNIA REPAIR [None]
  - NERVE INJURY [None]
  - PAIN [None]
  - PELVIC FLOOR MUSCLE WEAKNESS [None]
